FAERS Safety Report 16523360 (Version 1)
Quarter: 2019Q3

REPORT INFORMATION
  Report Type: Spontaneous
  Country: CA (occurrence: CA)
  Receive Date: 20190703
  Receipt Date: 20190703
  Transmission Date: 20191004
  Serious: Yes (Hospitalization, Other)
  Sender: FDA-Public Use
  Company Number: CA-ACCORD-132891

PATIENT
  Age: 10 Year
  Sex: Male

DRUGS (13)
  1. DOXORUBICIN [Suspect]
     Active Substance: DOXORUBICIN
     Indication: BURKITT^S LYMPHOMA
     Dosage: 60 MG/M2 I.V. OVER 15 MINUTES ON DAY 2 (AFTER THE FIRST DOSE OF CYCLOPHOSPHAMIDE)
     Route: 042
  2. HYDROCORTISONE. [Suspect]
     Active Substance: HYDROCORTISONE
     Indication: BURKITT^S LYMPHOMA
     Dosage: 15 MG ON DAY 1
     Route: 037
  3. CYTARABINE/CYTARABINE HYDROCHLORIDE/CYTARABINE OCFOSFATE [Concomitant]
     Indication: BURKITT^S LYMPHOMA
     Dosage: CONTINUOUS I.V. INFUSION OVER 24 HOURS,?DAILY X 5 DAYS ON DAYS 2, 3, 4, 5 AND 6
  4. METHOTREXATE. [Suspect]
     Active Substance: METHOTREXATE
     Indication: BURKITT^S LYMPHOMA
     Dosage: INTRAVENOUS HIGH-DOSE, 3 G/M2 OVER 3 HOURS
     Route: 037
  5. PREDNISONE. [Suspect]
     Active Substance: PREDNISONE
     Indication: BURKITT^S LYMPHOMA
     Dosage: PREDNISONE 30 MG/M2/DOSE P.O. B.I.D. X 14 DOSES ON DAYS 1, 2, 3, 4, 5, 6, AND 7
     Route: 048
  6. ETOPOSIDE. [Concomitant]
     Active Substance: ETOPOSIDE
     Indication: BURKITT^S LYMPHOMA
     Dosage: E I.V. OVER 2 HOURS, ONCE DAILY X 4 DAYS ON?DAYS 2, 3, 4, 5;
  7. RITUXIMAB. [Suspect]
     Active Substance: RITUXIMAB
     Indication: BURKITT^S LYMPHOMA
     Dosage: ON DAYS -1 AND +1
     Route: 042
  8. CYCLOPHOSPHAMIDE/CYCLOPHOSPHAMIDE MONOHYDRATE [Suspect]
     Active Substance: CYCLOPHOSPHAMIDE
     Indication: BURKITT^S LYMPHOMA
     Dosage: 250 MG/M2/DOSE I.V. OVER 30 MINUTES Q12H X 6 DOSES ON DAYS 2, 3, 4
     Route: 042
  9. VINCRISTINE [Suspect]
     Active Substance: VINCRISTINE
     Indication: BURKITT^S LYMPHOMA
     Dosage: 2 MG/M2 (MAX 2MG) I.V. PUSH ON DAY 1
     Route: 042
  10. CASPOFUNGIN [Concomitant]
     Active Substance: CASPOFUNGIN
     Indication: PROPHYLAXIS
     Route: 042
  11. FOLINIC ACID [Concomitant]
     Active Substance: LEUCOVORIN
     Indication: BURKITT^S LYMPHOMA
     Dosage: AT 48 AND 60 HOURS
     Route: 048
  12. LEVOFLOXACIN. [Concomitant]
     Active Substance: LEVOFLOXACIN
     Indication: PROPHYLAXIS
     Route: 048
  13. GRANULOCYTE COLONY STIMULATING [Concomitant]
     Active Substance: GRANULOCYTE COLONY-STIMULATING FACTOR NOS
     Indication: PROPHYLAXIS
     Dosage: FILGRASTIM (G-CSF) 5 UG/KG/DOSE (MAX 300 UG) S.C. DAILY (24 HOURS AFTER THE LAST DOSE OF CHEMO
     Route: 058

REACTIONS (7)
  - Skin disorder [Unknown]
  - Enteritis [Unknown]
  - Febrile neutropenia [Recovered/Resolved]
  - Mucosal inflammation [Recovered/Resolved]
  - Clostridium difficile infection [Unknown]
  - Hypotension [Unknown]
  - Candida infection [Unknown]
